FAERS Safety Report 19776325 (Version 1)
Quarter: 2021Q3

REPORT INFORMATION
  Report Type: Other
  Country: IN (occurrence: IN)
  Receive Date: 20210901
  Receipt Date: 20210901
  Transmission Date: 20211014
  Serious: Yes (Other)
  Sender: FDA-Public Use
  Company Number: IN-DEXPHARM-20211442

PATIENT
  Age: 52 Year
  Sex: Male

DRUGS (5)
  1. PANTOPRAZOLE [Suspect]
     Active Substance: PANTOPRAZOLE
  2. DEXAMETHASONE. [Suspect]
     Active Substance: DEXAMETHASONE
  3. ONDANSETRON [Suspect]
     Active Substance: ONDANSETRON
  4. FEBUXOSTAT. [Suspect]
     Active Substance: FEBUXOSTAT
  5. FUROSEMIDE. [Suspect]
     Active Substance: FUROSEMIDE

REACTIONS (1)
  - Thrombocytopenic purpura [Recovered/Resolved]
